FAERS Safety Report 21748235 (Version 2)
Quarter: 2022Q4

REPORT INFORMATION
  Report Type: Spontaneous
  Country: US (occurrence: US)
  Receive Date: 20221219
  Receipt Date: 20221229
  Transmission Date: 20230112
  Serious: No
  Sender: FDA-Public Use
  Company Number: US-FreseniusKabi-FK202217569

PATIENT
  Age: 78 Year
  Sex: Female
  Weight: 50.9 kg

DRUGS (24)
  1. HEPARIN SODIUM [Suspect]
     Active Substance: HEPARIN SODIUM
     Indication: Anticoagulant therapy
     Dosage: AT 08:47
     Route: 013
     Dates: start: 20221128, end: 20221128
  2. HEPARIN SODIUM [Suspect]
     Active Substance: HEPARIN SODIUM
     Dosage: AT 09:04
     Route: 058
     Dates: start: 20221128, end: 20221128
  3. HEPARIN SODIUM [Suspect]
     Active Substance: HEPARIN SODIUM
     Dosage: AT 09:21
     Route: 058
     Dates: start: 20221128, end: 20221128
  4. HEPARIN SODIUM [Suspect]
     Active Substance: HEPARIN SODIUM
     Dosage: AT 09:34
     Route: 013
     Dates: start: 20221128, end: 20221128
  5. HEPARIN SODIUM [Suspect]
     Active Substance: HEPARIN SODIUM
     Dosage: AT 09:47
     Route: 013
     Dates: start: 20221128, end: 20221128
  6. LOVENOX [Concomitant]
     Active Substance: ENOXAPARIN SODIUM
     Indication: Product used for unknown indication
     Dosage: FULL DOSE Q.12 HOURS.
  7. ASPIRIN [Concomitant]
     Active Substance: ASPIRIN
     Indication: Product used for unknown indication
     Dosage: PO (THE EVENING PRIOR)
     Route: 048
  8. LISINOPRIL [Concomitant]
     Active Substance: LISINOPRIL
     Indication: Product used for unknown indication
     Dosage: PO (THE EVENING PRIOR)
     Route: 048
  9. solu?cortef [Concomitant]
     Indication: Product used for unknown indication
     Route: 040
  10. BENADRYL [Concomitant]
     Active Substance: DIPHENHYDRAMINE HYDROCHLORIDE
     Indication: Product used for unknown indication
     Dosage: PO (THE EVENING PRIOR)
     Route: 040
  11. FENTANYL [Concomitant]
     Active Substance: FENTANYL
     Indication: Product used for unknown indication
     Route: 040
  12. FENTANYL [Concomitant]
     Active Substance: FENTANYL
     Indication: Product used for unknown indication
     Route: 040
  13. lidocaine 1 Percent [Concomitant]
     Indication: Product used for unknown indication
     Dosage: 1ML INFILTRATION,
  14. nitroglycerin 50mg/250ml [Concomitant]
     Indication: Product used for unknown indication
     Route: 041
  15. TICAGRELOR [Concomitant]
     Active Substance: TICAGRELOR
     Indication: Product used for unknown indication
     Dosage: TICAGRELOR 180MG PO
     Route: 048
  16. Isovue?370 [Concomitant]
     Indication: Product used for unknown indication
  17. VITAMIN D3 [Concomitant]
     Active Substance: CHOLECALCIFEROL
     Indication: Product used for unknown indication
     Dosage: VITAMIN D3 1,000 UNITS PO DAILY
  18. VITAMIN B12 [Concomitant]
     Active Substance: CYANOCOBALAMIN
     Indication: Product used for unknown indication
     Route: 048
  19. VITAMIN B12 [Concomitant]
     Active Substance: CYANOCOBALAMIN
     Route: 048
  20. FOLIC ACID [Concomitant]
     Active Substance: FOLIC ACID
     Indication: Product used for unknown indication
  21. FOLIC ACID [Concomitant]
     Active Substance: FOLIC ACID
     Indication: Product used for unknown indication
  22. LACTICASEIBACILLUS RHAMNOSUS GG [Concomitant]
     Active Substance: LACTICASEIBACILLUS RHAMNOSUS GG
     Indication: Product used for unknown indication
     Dosage: 1 CAPSULE PO DAILY
     Route: 048
  23. VERAPAMIL [Concomitant]
     Active Substance: VERAPAMIL HYDROCHLORIDE
     Indication: Product used for unknown indication
     Route: 013
  24. HEPARIN SODIUM\SODIUM CHLORIDE [Concomitant]
     Active Substance: HEPARIN SODIUM\SODIUM CHLORIDE
     Indication: Product used for unknown indication
     Dosage: 1000 UNIT/500 ML DRIP
     Route: 041

REACTIONS (2)
  - Off label use [Unknown]
  - Therapeutic product effect delayed [Unknown]

NARRATIVE: CASE EVENT DATE: 20221128
